FAERS Safety Report 14154696 (Version 1)
Quarter: 2017Q4

REPORT INFORMATION
  Report Type: Report from Study
  Country: US (occurrence: US)
  Receive Date: 20171102
  Receipt Date: 20171102
  Transmission Date: 20180321
  Serious: Yes (Hospitalization)
  Sender: FDA-Public Use
  Company Number: US-VIFOR (INTERNATIONAL) INC.-VIT-2017-11733

PATIENT
  Age: 64 Year
  Sex: Female

DRUGS (21)
  1. VELTASSA [Suspect]
     Active Substance: PATIROMER
     Indication: HYPERKALAEMIA
     Route: 048
  2. PROMETHAZINE [Concomitant]
     Active Substance: PROMETHAZINE\PROMETHAZINE HYDROCHLORIDE
  3. LANTUS [Concomitant]
     Active Substance: INSULIN GLARGINE
  4. FUROSEMIDE. [Concomitant]
     Active Substance: FUROSEMIDE
  5. PRAMIPEXOLE. [Concomitant]
     Active Substance: PRAMIPEXOLE
  6. TOVIAZ [Concomitant]
     Active Substance: FESOTERODINE FUMARATE
  7. OMEPRAZOLE. [Concomitant]
     Active Substance: OMEPRAZOLE
  8. CITALOPRAM [Concomitant]
     Active Substance: CITALOPRAM HYDROBROMIDE
  9. SODIUM BICARBONATE. [Concomitant]
     Active Substance: SODIUM BICARBONATE
  10. ESTRADIOL. [Concomitant]
     Active Substance: ESTRADIOL
  11. FLUTICASONE. [Concomitant]
     Active Substance: FLUTICASONE
  12. AMLODIPINE [Concomitant]
     Active Substance: AMLODIPINE BESYLATE
  13. TRAMADOL. [Concomitant]
     Active Substance: TRAMADOL
  14. AZITHROMYCIN ANHYDROUS. [Concomitant]
     Active Substance: AZITHROMYCIN ANHYDROUS
  15. PREDNISONE. [Concomitant]
     Active Substance: PREDNISONE
  16. PRAVASTATIN. [Concomitant]
     Active Substance: PRAVASTATIN
  17. MAGNESIUM CARBONATE [Concomitant]
     Active Substance: MAGNESIUM CARBONATE
  18. MONTELUKAST [Concomitant]
     Active Substance: MONTELUKAST SODIUM
  19. MYCOPHENOLATE MOFETIL. [Concomitant]
     Active Substance: MYCOPHENOLATE MOFETIL
  20. CARVEDILOL. [Concomitant]
     Active Substance: CARVEDILOL
  21. SULFAMETHOXAZOLE~~TRIMETHOPRIM [Concomitant]

REACTIONS (2)
  - Abdominal pain upper [Not Recovered/Not Resolved]
  - Blood glucose increased [Not Recovered/Not Resolved]

NARRATIVE: CASE EVENT DATE: 20171011
